FAERS Safety Report 9665707 (Version 1)
Quarter: 2013Q4

REPORT INFORMATION
  Report Type: Report from Study
  Country: JP (occurrence: JP)
  Receive Date: 20131104
  Receipt Date: 20131104
  Transmission Date: 20140711
  Serious: Yes (Death)
  Sender: FDA-Public Use
  Company Number: JP-009507513-1311JPN000066

PATIENT
  Age: 72 Year
  Sex: Male
  Weight: 49 kg

DRUGS (3)
  1. TEMOZOLOMIDE [Suspect]
     Indication: GLIOBLASTOMA MULTIFORME
     Dosage: CONCENTRATION: 100 MG, ONE TIME AT THIS DAY
     Route: 041
     Dates: start: 20130528, end: 20130528
  2. TEMODAL [Suspect]
     Indication: GLIOBLASTOMA MULTIFORME
     Route: 048
  3. FINIBAX [Concomitant]
     Dosage: UNK
     Route: 041
     Dates: start: 20130522, end: 20130603

REACTIONS (1)
  - Disease progression [Fatal]
